FAERS Safety Report 5025516-9 (Version None)
Quarter: 2006Q2

REPORT INFORMATION
  Report Type: 
  Country: None (occurrence: None)
  Receive Date: 20060607
  Receipt Date: 20060526
  Transmission Date: 20061013
  Serious: Yes (Life-Threatening, Hospitalization)
  Sender: FDA-Public Use
  Company Number: CH-2006-012863

PATIENT
  Sex: Female

DRUGS (7)
  1. FLUDARA [Suspect]
     Indication: CHRONIC LYMPHOCYTIC LEUKAEMIA
     Dosage: 35 MG/D, CONT, IV, DRIP
     Route: 041
     Dates: start: 20060511, end: 20060513
  2. MABTHERA (RITUXIMAB) [Suspect]
     Indication: CHRONIC LYMPHOCYTIC LEUKAEMIA
     Dosage: IV DRIP
     Route: 041
     Dates: start: 20060510, end: 20060510
  3. ALLOPURINOL [Concomitant]
  4. ASPIRIN [Concomitant]
  5. COMILORIDE                   (AMLORIDE HYDROCHLORIDE) [Concomitant]
  6. TIMOPTIC [Concomitant]
  7. PRAVASTATIN [Concomitant]

REACTIONS (4)
  - ANGIONEUROTIC OEDEMA [None]
  - DIARRHOEA [None]
  - PYREXIA [None]
  - RASH PRURITIC [None]
